FAERS Safety Report 8990987 (Version 1)
Quarter: 2012Q4

REPORT INFORMATION
  Report Type: 
  Country: LU (occurrence: LU)
  Receive Date: 20121231
  Receipt Date: 20121231
  Transmission Date: 20130627
  Serious: Yes (Other)
  Sender: FDA-Public Use
  Company Number: LU-AMGEN-LUXSP2012083240

PATIENT
  Sex: Female

DRUGS (2)
  1. PROLIA [Suspect]
     Indication: PRODUCT USED FOR UNKNOWN INDICATION
  2. PALACOS [Concomitant]

REACTIONS (4)
  - Hip fracture [Unknown]
  - Fall [Unknown]
  - Shock [Unknown]
  - Circulatory collapse [Unknown]
